FAERS Safety Report 6209646-1 (Version None)
Quarter: 2009Q2

REPORT INFORMATION
  Report Type: 
  Country: None (occurrence: None)
  Receive Date: 20090601
  Receipt Date: 20071121
  Transmission Date: 20091009
  Serious: Yes (Hospitalization)
  Sender: FDA-Public Use
  Company Number: US-ASTRAZENECA-2006UW22358

PATIENT
  Age: 45 Year
  Sex: Female
  Weight: 131.3 kg

DRUGS (12)
  1. SEROQUEL [Suspect]
     Indication: DEPRESSION
     Route: 048
     Dates: start: 20011201
  2. SEROQUEL [Suspect]
     Dosage: 300-600 MG
     Route: 048
     Dates: start: 20030207
  3. EFFEXOR [Concomitant]
     Route: 048
     Dates: start: 20011111
  4. CALAN [Concomitant]
     Dates: start: 20011111
  5. ACCUPRIL [Concomitant]
     Dosage: 20-40 MG QD
     Route: 048
     Dates: start: 20011111
  6. HYDRODIURIL [Concomitant]
     Route: 048
     Dates: start: 20011111
  7. LORTAB [Concomitant]
     Indication: PAIN
     Dosage: 1-2 TABS Q3 HRS PRN
     Route: 048
     Dates: start: 20020301
  8. MORPHINE [Concomitant]
     Dosage: 3-6 MG EVERY 1-2 HR AS NEEDED
     Dates: start: 20020301
  9. PROTONIX [Concomitant]
     Route: 048
     Dates: start: 20011111
  10. NORVASC [Concomitant]
     Route: 048
     Dates: start: 20030618
  11. TOPROL-XL [Concomitant]
     Route: 048
     Dates: start: 20030618
  12. NITROGLYCERIN [Concomitant]
     Dates: start: 20020205

REACTIONS (4)
  - DIABETES MELLITUS [None]
  - HYPERGLYCAEMIC HYPEROSMOLAR NONKETOTIC SYNDROME [None]
  - INSULIN-REQUIRING TYPE 2 DIABETES MELLITUS [None]
  - TYPE 2 DIABETES MELLITUS [None]
